FAERS Safety Report 5821579-9 (Version None)
Quarter: 2008Q3

REPORT INFORMATION
  Report Type: 
  Country: None (occurrence: None)
  Receive Date: 20080724
  Receipt Date: 20080718
  Transmission Date: 20090109
  Serious: Yes (Other)
  Sender: FDA-Public Use
  Company Number: PHHY2008JP14693

PATIENT

DRUGS (1)
  1. NITRODERM [Suspect]
     Indication: HYPERTENSION
     Route: 062

REACTIONS (2)
  - ANAEMIA [None]
  - BLOOD PRESSURE DECREASED [None]
